FAERS Safety Report 5346413-5 (Version None)
Quarter: 2007Q2

REPORT INFORMATION
  Report Type: 
  Country: None (occurrence: None)
  Receive Date: 20070605
  Receipt Date: 20070521
  Transmission Date: 20071010
  Serious: Yes (Death, Hospitalization, Other)
  Sender: FDA-Public Use
  Company Number: DE-SHR-DE-2007-020585

PATIENT
  Sex: Male
  Weight: 85 kg

DRUGS (1)
  1. CAMPATH [Suspect]
     Dosage: 30 MG, UNK
     Route: 058
     Dates: start: 20030602, end: 20030625

REACTIONS (2)
  - DEATH [None]
  - INFECTION [None]
